FAERS Safety Report 8305655-7 (Version None)
Quarter: 2012Q2

REPORT INFORMATION
  Report Type: 
  Country: None (occurrence: None)
  Receive Date: 20120423
  Receipt Date: 20120411
  Transmission Date: 20120825
  Serious: Yes (Other)
  Sender: FDA-Public Use
  Company Number: CA-PFIZER INC-2012096194

PATIENT
  Age: 71 Year
  Sex: Male

DRUGS (15)
  1. INDOMETHACIN [Concomitant]
  2. INVESTIGATIONAL DRUG [Concomitant]
  3. MORPHINE SULFATE [Suspect]
     Dosage: 25 MG, 2X/DAY
     Route: 048
  4. MORPHINE SULFATE [Suspect]
     Dosage: 30 MG, DAILY
     Route: 048
  5. MORPHINE SULFATE [Suspect]
     Dosage: 60 MG, 2X/DAY
     Route: 048
  6. MORPHINE SULFATE [Suspect]
     Dosage: 100 MG, 2X/DAY
     Route: 048
  7. MORPHINE SULFATE [Suspect]
     Dosage: 60 MG, 2X/DAY
     Route: 048
  8. MORPHINE SULFATE [Suspect]
     Dosage: 10 MG, DAILY
     Route: 048
  9. ALPHA LIPOIC ACID [Concomitant]
  10. MORPHINE SULFATE [Suspect]
     Dosage: 30 MG, 2X/DAY
     Route: 048
  11. OXYCODONE HYDROCHLORIDE [Suspect]
     Dosage: 5 MG, DAILY
     Route: 048
  12. MORPHINE SULFATE [Suspect]
     Dosage: 10 MG, 2X/DAY
     Route: 048
  13. MORPHINE SULFATE [Suspect]
     Dosage: 105 MG, DAILY
     Route: 048
  14. ACETYLCARNITINE [Concomitant]
  15. VITAMIN B1 TAB [Concomitant]

REACTIONS (9)
  - OVERDOSE [None]
  - ANAEMIA [None]
  - CONSTIPATION [None]
  - SOMNOLENCE [None]
  - RESTLESSNESS [None]
  - MYOCLONUS [None]
  - TENDERNESS [None]
  - WEIGHT DECREASED [None]
  - ASTHENIA [None]
